FAERS Safety Report 15237275 (Version 1)
Quarter: 2018Q3

REPORT INFORMATION
  Report Type: Spontaneous
  Country: US (occurrence: US)
  Receive Date: 20180710
  Receipt Date: 20180710
  Transmission Date: 20181010
  Serious: Yes (Other)
  Sender: FDA-Public Use
  Company Number: None

PATIENT
  Age: 59 Year
  Sex: Male
  Weight: 93.6 kg

DRUGS (1)
  1. ATORVASTATIN 10 MG [Suspect]
     Active Substance: ATORVASTATIN
     Indication: BLOOD CHOLESTEROL INCREASED
     Dosage: ?          QUANTITY:30 TABLET(S);?
     Route: 048
     Dates: start: 20180706, end: 20180709

REACTIONS (7)
  - Fatigue [None]
  - Hyperhidrosis [None]
  - Sinus bradycardia [None]
  - Confusional state [None]
  - Vertigo [None]
  - Impaired driving ability [None]
  - Vomiting projectile [None]

NARRATIVE: CASE EVENT DATE: 20180709
